FAERS Safety Report 12770463 (Version 1)
Quarter: 2016Q3

REPORT INFORMATION
  Report Type: Spontaneous
  Country: US (occurrence: US)
  Receive Date: 20160921
  Receipt Date: 20160921
  Transmission Date: 20161109
  Serious: Yes (Other)
  Sender: FDA-Public Use
  Company Number: None

PATIENT
  Age: 41 Year
  Sex: Male
  Weight: 80 kg

DRUGS (1)
  1. RASBURICASE [Suspect]
     Active Substance: RASBURICASE
     Indication: BLOOD URIC ACID INCREASED

REACTIONS (1)
  - Methaemoglobinaemia [None]

NARRATIVE: CASE EVENT DATE: 20160831
